FAERS Safety Report 8465553-5 (Version None)
Quarter: 2012Q2

REPORT INFORMATION
  Report Type: 
  Country: None (occurrence: None)
  Receive Date: 20120626
  Receipt Date: 20120614
  Transmission Date: 20120825
  Serious: Yes (Other)
  Sender: FDA-Public Use
  Company Number: US-BAYER-2012-059376

PATIENT
  Age: 53 Year
  Sex: Male
  Weight: 145 kg

DRUGS (4)
  1. CELEBREX [Suspect]
     Indication: ARTHRITIS
     Dosage: 200 MG, QD
     Route: 048
     Dates: start: 20120525, end: 20120526
  2. ALEVE (CAPLET) [Suspect]
     Indication: ARTHRITIS
     Dosage: UNK UNK, PRN
     Dates: start: 20120501, end: 20120526
  3. LISINOPRIL [Concomitant]
     Indication: HYPERTENSION
     Dosage: DAILY DOSE 20 MG
  4. CELEBREX [Suspect]
     Indication: ARTHRALGIA
     Dosage: 200 MG, QD
     Route: 048
     Dates: start: 20120501, end: 20120521

REACTIONS (1)
  - HEART RATE INCREASED [None]
